FAERS Safety Report 9890600 (Version 2)
Quarter: 2018Q1

REPORT INFORMATION
  Report Type: Report from Study
  Country: US (occurrence: US)
  Receive Date: 20140212
  Receipt Date: 20180315
  Transmission Date: 20180509
  Serious: Yes (Other)
  Sender: FDA-Public Use
  Company Number: US-ROCHE-1344592

PATIENT
  Age: 3 Year
  Sex: Female
  Weight: 13.8 kg

DRUGS (2)
  1. NUTROPIN AQ [Suspect]
     Active Substance: SOMATROPIN
     Route: 058
  2. NUTROPIN AQ [Suspect]
     Active Substance: SOMATROPIN
     Indication: BODY HEIGHT BELOW NORMAL
     Route: 058
     Dates: start: 201303

REACTIONS (4)
  - Intestinal perforation [Unknown]
  - Gait disturbance [Unknown]
  - Chorioretinal scar [Unknown]
  - Balance disorder [Unknown]

NARRATIVE: CASE EVENT DATE: 201401
